FAERS Safety Report 21947701 (Version 1)
Quarter: 2023Q1

REPORT INFORMATION
  Report Type: Spontaneous
  Country: ES (occurrence: ES)
  Receive Date: 20230203
  Receipt Date: 20230203
  Transmission Date: 20230418
  Serious: Yes (Other)
  Sender: FDA-Public Use
  Company Number: ES-NORMON-20220473

PATIENT
  Age: 50 Year
  Sex: Female

DRUGS (24)
  1. BUPROPION [Suspect]
     Active Substance: BUPROPION
     Indication: Schizophrenia
     Dosage: 150 MG, QD (1-0-0)
     Route: 065
  2. BUPROPION [Suspect]
     Active Substance: BUPROPION
     Indication: Depression
  3. ALPRAZOLAM [Suspect]
     Active Substance: ALPRAZOLAM
     Indication: Schizophrenia
     Dosage: 1 MG, TID (1-1-1)
     Route: 065
  4. ALPRAZOLAM [Suspect]
     Active Substance: ALPRAZOLAM
     Indication: Depression
  5. LORMETAZEPAM [Suspect]
     Active Substance: LORMETAZEPAM
     Indication: Schizophrenia
     Dosage: 2 MG, QD (0-0-1)
     Route: 065
  6. LORMETAZEPAM [Suspect]
     Active Substance: LORMETAZEPAM
     Indication: Depression
  7. TRAZODONE HYDROCHLORIDE [Suspect]
     Active Substance: TRAZODONE HYDROCHLORIDE
     Indication: Schizophrenia
     Dosage: 100 MG, QD (0-0-1)
     Route: 065
  8. TRAZODONE HYDROCHLORIDE [Suspect]
     Active Substance: TRAZODONE HYDROCHLORIDE
     Indication: Depression
  9. QUETIAPINE [Suspect]
     Active Substance: QUETIAPINE
     Indication: Schizophrenia
     Dosage: 300 MG, QD (0-0-1)
     Route: 065
  10. QUETIAPINE [Suspect]
     Active Substance: QUETIAPINE
     Indication: Depression
  11. REBOXETINE [Suspect]
     Active Substance: REBOXETINE
     Indication: Schizophrenia
     Dosage: 4 MG, BID (1-1-0)
     Route: 065
  12. REBOXETINE [Suspect]
     Active Substance: REBOXETINE
     Indication: Depression
  13. CLOTHIAPINE [Suspect]
     Active Substance: CLOTHIAPINE
     Indication: Schizophrenia
     Dosage: 40 MG, QD (0-0-1)
     Route: 065
  14. CLOTHIAPINE [Suspect]
     Active Substance: CLOTHIAPINE
     Indication: Depression
  15. FENTANYL [Concomitant]
     Active Substance: FENTANYL
     Indication: Intervertebral disc protrusion
     Dosage: 25 MCG/H (TRANSDERMAL PATCHES, CHANGED EVERY THREE DAYS)
     Route: 062
     Dates: start: 2019
  16. FENTANYL [Concomitant]
     Active Substance: FENTANYL
     Indication: Lumbar hernia
  17. OMEPRAZOLE [Concomitant]
     Active Substance: OMEPRAZOLE
     Indication: Intervertebral disc protrusion
     Dosage: 20 MG, QD
     Route: 065
     Dates: start: 2019
  18. OMEPRAZOLE [Concomitant]
     Active Substance: OMEPRAZOLE
     Indication: Lumbar hernia
  19. TIOTROPIUM BROMIDE [Concomitant]
     Active Substance: TIOTROPIUM BROMIDE
     Indication: Emphysema
     Dosage: 2.5 MG, QD (0-0-1)
     Route: 065
     Dates: start: 2019
  20. ACETAMINOPHEN [Concomitant]
     Active Substance: ACETAMINOPHEN
     Indication: Intervertebral disc protrusion
     Dosage: 1 G, TID (1-1-1)
     Route: 065
     Dates: start: 2019
  21. ACETAMINOPHEN [Concomitant]
     Active Substance: ACETAMINOPHEN
     Indication: Lumbar hernia
  22. PREGABALIN [Concomitant]
     Active Substance: PREGABALIN
     Indication: Intervertebral disc protrusion
     Dosage: 150 MG, TID (1-1-1)
     Route: 065
     Dates: start: 2019
  23. PREGABALIN [Concomitant]
     Active Substance: PREGABALIN
     Indication: Lumbar hernia
  24. OXYGEN [Concomitant]
     Active Substance: OXYGEN
     Indication: Emphysema
     Dosage: UNK
     Route: 065

REACTIONS (2)
  - Oral candidiasis [Recovered/Resolved]
  - Dry mouth [Recovered/Resolved]
